FAERS Safety Report 9271273 (Version 2)
Quarter: 2015Q2

REPORT INFORMATION
  Report Type: Spontaneous
  Country: US (occurrence: US)
  Receive Date: 20130506
  Receipt Date: 20150527
  Transmission Date: 20150821
  Serious: Yes (Congenital Anomaly)
  Sender: FDA-Public Use
  Company Number: US-ELI_LILLY_AND_COMPANY-US201304008027

PATIENT
  Sex: Female

DRUGS (5)
  1. MAGNES SULF [Concomitant]
     Route: 064
  2. BRETHINE [Concomitant]
     Active Substance: TERBUTALINE SULFATE
     Route: 064
  3. INDERAL [Concomitant]
     Active Substance: PROPRANOLOL HYDROCHLORIDE
     Route: 064
  4. PROZAC [Suspect]
     Active Substance: FLUOXETINE HYDROCHLORIDE
     Indication: PRODUCT USED FOR UNKNOWN INDICATION
     Dosage: 10 MG, QD
     Route: 064
     Dates: start: 19980904
  5. PRENAT                             /00023601/ [Concomitant]
     Route: 064

REACTIONS (10)
  - Pulmonary valve stenosis [Unknown]
  - Pulmonary artery stenosis congenital [Unknown]
  - Congenital oral malformation [Unknown]
  - Acoustic stimulation tests abnormal [Unknown]
  - Speech disorder [Unknown]
  - Foetal exposure during pregnancy [Unknown]
  - Premature baby [Unknown]
  - Atrial septal defect [Recovered/Resolved]
  - Attention deficit/hyperactivity disorder [Unknown]
  - Hypersensitivity [Unknown]
